FAERS Safety Report 23886556 (Version 2)
Quarter: 2024Q2

REPORT INFORMATION
  Report Type: Spontaneous
  Country: US (occurrence: US)
  Receive Date: 20240522
  Receipt Date: 20240529
  Transmission Date: 20240715
  Serious: Yes (Other)
  Sender: FDA-Public Use
  Company Number: US-LUNDBECK-DKLU3078304

PATIENT
  Age: 35 Year
  Sex: Female

DRUGS (1)
  1. VYEPTI [Suspect]
     Active Substance: EPTINEZUMAB-JJMR
     Indication: Migraine
     Route: 041

REACTIONS (5)
  - Carpal tunnel decompression [Not Recovered/Not Resolved]
  - Elbow operation [Not Recovered/Not Resolved]
  - Peripheral nerve decompression [Not Recovered/Not Resolved]
  - Finger repair operation [Not Recovered/Not Resolved]
  - Inappropriate schedule of product administration [Unknown]

NARRATIVE: CASE EVENT DATE: 20231228
